FAERS Safety Report 11073963 (Version 3)
Quarter: 2015Q2

REPORT INFORMATION
  Report Type: Spontaneous
  Country: US (occurrence: US)
  Receive Date: 20150429
  Receipt Date: 20150608
  Transmission Date: 20150821
  Serious: Yes (Hospitalization, Other)
  Sender: FDA-Public Use
  Company Number: US-AMGEN-USASP2015040694

PATIENT
  Age: 54 Year
  Sex: Female

DRUGS (2)
  1. STELARA [Concomitant]
     Active Substance: USTEKINUMAB
     Dosage: UNK
  2. ENBREL [Suspect]
     Active Substance: ETANERCEPT
     Indication: PSORIASIS
     Dosage: 50 MG, QWK
     Route: 065
     Dates: start: 20130311

REACTIONS (7)
  - Staphylococcal infection [Recovered/Resolved]
  - Malaise [Not Recovered/Not Resolved]
  - Weight increased [Unknown]
  - Skin ulcer [Recovered/Resolved]
  - Psoriasis [Not Recovered/Not Resolved]
  - Vaginal abscess [Recovered/Resolved]
  - Fall [Recovered/Resolved]

NARRATIVE: CASE EVENT DATE: 2014
